FAERS Safety Report 5488657-8 (Version None)
Quarter: 2007Q4

REPORT INFORMATION
  Report Type: 
  Country: None (occurrence: None)
  Receive Date: 20071017
  Receipt Date: 20070618
  Transmission Date: 20080405
  Serious: No
  Sender: FDA-Public Use
  Company Number: A0657229A

PATIENT
  Age: 6 Year
  Sex: Male

DRUGS (3)
  1. CEFTIN [Suspect]
     Indication: LYME DISEASE
     Dosage: 6ML TWICE PER DAY
     Route: 048
     Dates: start: 20070617
  2. TYLENOL (CAPLET) [Concomitant]
  3. MOTRIN [Concomitant]

REACTIONS (1)
  - VOMITING [None]
